FAERS Safety Report 5923099-X (Version None)
Quarter: 2008Q4

REPORT INFORMATION
  Report Type: 
  Country: None (occurrence: None)
  Receive Date: 20081018
  Receipt Date: 20081006
  Transmission Date: 20090506
  Serious: Yes (Other)
  Sender: FDA-Public Use
  Company Number: JP-PFIZER INC-2008086277

PATIENT
  Sex: Female

DRUGS (1)
  1. ZOLOFT [Suspect]
     Route: 048

REACTIONS (4)
  - KERATITIS [None]
  - LIP PAIN [None]
  - ORAL MUCOSA EROSION [None]
  - STOMATITIS [None]
